FAERS Safety Report 22029207 (Version 1)
Quarter: 2023Q1

REPORT INFORMATION
  Report Type: Spontaneous
  Country: US (occurrence: None)
  Receive Date: 20230220
  Receipt Date: 20230220
  Transmission Date: 20230418
  Serious: Yes (Hospitalization)
  Sender: FDA-Public Use
  Company Number: None

PATIENT
  Sex: Male

DRUGS (1)
  1. VIGABATRIN [Suspect]
     Active Substance: VIGABATRIN
     Indication: Tuberous sclerosis complex
     Dosage: 1000 MG TWICE DAILY ORAL?
     Route: 048
     Dates: start: 202105

REACTIONS (5)
  - Febrile convulsion [None]
  - COVID-19 [None]
  - Respiratory arrest [None]
  - Cyanosis [None]
  - Unresponsive to stimuli [None]
